FAERS Safety Report 10227208 (Version 1)
Quarter: 2014Q2

REPORT INFORMATION
  Report Type: Report from Study
  Country: CA (occurrence: None)
  Receive Date: 20140606
  Receipt Date: 20140606
  Transmission Date: 20141212
  Serious: Yes (Death)
  Sender: FDA-Public Use
  Company Number: CA-015908

PATIENT
  Age: 82 Year
  Sex: Male

DRUGS (7)
  1. FIRMAGON /01764801/  (FIRMAGON) 80 MG (NOT SPECIFIED) [Suspect]
     Indication: PROSTATE CANCER
     Dosage: 1X/MONTH
     Route: 058
     Dates: start: 20120710
  2. PREDNISONE [Concomitant]
  3. CALCIUM [Concomitant]
  4. VITAMIN B12/07503801/ [Concomitant]
  5. VITAMIN D NOS [Concomitant]
  6. DENOSUMAB [Concomitant]
  7. TYLENOL /00020001/ [Concomitant]

REACTIONS (1)
  - Fall [None]
